FAERS Safety Report 24306736 (Version 1)
Quarter: 2024Q3

REPORT INFORMATION
  Report Type: Spontaneous
  Country: US (occurrence: None)
  Receive Date: 20240910
  Receipt Date: 20240910
  Transmission Date: 20241017
  Serious: Yes (Hospitalization)
  Sender: Public
  Company Number: None

PATIENT
  Age: 66 Year
  Sex: Female

DRUGS (1)
  1. IBRANCE [Suspect]
     Active Substance: PALBOCICLIB
     Indication: Breast cancer female
     Dosage: OTHER FREQUENCY : QD FOR 21 DAYS,THEN 7 DAYS OFF;?
     Route: 048

REACTIONS (5)
  - Pneumonia [None]
  - Blindness [None]
  - Cataract [None]
  - Glaucoma [None]
  - Unevaluable event [None]
